FAERS Safety Report 23103964 (Version 1)
Quarter: 2023Q4

REPORT INFORMATION
  Report Type: Spontaneous
  Country: US (occurrence: None)
  Receive Date: 20231022
  Receipt Date: 20231022
  Transmission Date: 20240110
  Serious: Yes (Hospitalization)
  Sender: FDA-Public Use
  Company Number: None

PATIENT
  Age: 56 Year
  Sex: Male
  Weight: 83.9 kg

DRUGS (1)
  1. SEMAGLUTIDE [Suspect]
     Active Substance: SEMAGLUTIDE
     Dates: start: 20210714, end: 20210821

REACTIONS (3)
  - Diabetic ketoacidosis [None]
  - Acidosis [None]
  - Dyspnoea [None]

NARRATIVE: CASE EVENT DATE: 20210818
